FAERS Safety Report 9801891 (Version 1)
Quarter: 2014Q1

REPORT INFORMATION
  Report Type: Spontaneous
  Country: US (occurrence: US)
  Receive Date: 20140107
  Receipt Date: 20140107
  Transmission Date: 20141002
  Serious: No
  Sender: FDA-Public Use
  Company Number: US-ALLERGAN-1303241US

PATIENT
  Age: 49 Year
  Sex: Female

DRUGS (4)
  1. ACZONE [Suspect]
     Indication: ACNE
     Dosage: UNK
     Route: 061
     Dates: start: 201302
  2. RETIN A [Concomitant]
     Indication: ACNE
     Dosage: ^LOW DOSE^ ALTERNATING NIGHTS
     Route: 061
  3. SPIRONOLACTONE [Concomitant]
     Indication: ACNE
     Dosage: UNK UNK, QD
     Route: 048
  4. CONTRACEPTIVES NOS [Concomitant]
     Indication: CONTRACEPTION
     Dosage: UNK

REACTIONS (1)
  - Acne [Unknown]
